FAERS Safety Report 22811871 (Version 5)
Quarter: 2025Q4

REPORT INFORMATION
  Report Type: Spontaneous
  Country: US (occurrence: US)
  Receive Date: 20230811
  Receipt Date: 20251209
  Transmission Date: 20260117
  Serious: Yes (Other)
  Sender: STRIDES
  Company Number: None

PATIENT

DRUGS (6)
  1. FLUOXETINE [Suspect]
     Active Substance: FLUOXETINE HYDROCHLORIDE
     Indication: Depression
     Dosage: 125 MILLIGRAM, OD
     Route: 048
  2. FLUOXETINE [Suspect]
     Active Substance: FLUOXETINE HYDROCHLORIDE
     Indication: Anxiety
  3. FLUOXETINE [Suspect]
     Active Substance: FLUOXETINE HYDROCHLORIDE
     Indication: Anxiolytic therapy
  4. BUPROPION [Suspect]
     Active Substance: BUPROPION
     Indication: Depression
     Dosage: 150 MILLIGRAM, TWICE A DAY (0.5 DAY), TAKING FOR MONTHS
     Route: 048
  5. BUPROPION [Suspect]
     Active Substance: BUPROPION
     Indication: Anxiety
  6. BUPROPION [Suspect]
     Active Substance: BUPROPION
     Indication: Antidepressant therapy

REACTIONS (1)
  - Hypersexuality [Recovered/Resolved]
